FAERS Safety Report 8912076 (Version 1)
Quarter: 2012Q4

REPORT INFORMATION
  Report Type: 
  Country: CA (occurrence: CA)
  Receive Date: 20121116
  Receipt Date: 20121116
  Transmission Date: 20130627
  Serious: Yes (Other)
  Sender: FDA-Public Use
  Company Number: CA-ASTRAZENECA-2012SE84890

PATIENT
  Age: 82 Year
  Sex: Female
  Weight: 68 kg

DRUGS (5)
  1. ATACAND [Suspect]
     Route: 048
  2. ALTACE [Concomitant]
  3. ATROVENT [Concomitant]
  4. LEVAQUIN [Concomitant]
  5. RATIO-SALBUTAMOL [Concomitant]

REACTIONS (3)
  - Asthenia [Recovered/Resolved]
  - Muscular weakness [Recovered/Resolved]
  - Myalgia [Recovered/Resolved]
